FAERS Safety Report 7660296-X (Version None)
Quarter: 2011Q3

REPORT INFORMATION
  Report Type: 
  Country: None (occurrence: None)
  Receive Date: 20110805
  Receipt Date: 20110726
  Transmission Date: 20111222
  Serious: Yes (Hospitalization)
  Sender: FDA-Public Use
  Company Number: PHHY2011TW68430

PATIENT
  Sex: Female
  Weight: 45.3 kg

DRUGS (1)
  1. CERTICAN [Suspect]
     Indication: IMMUNOSUPPRESSION
     Dosage: 0.5 MG, UNK
     Route: 048
     Dates: start: 20110616

REACTIONS (2)
  - HYPERGLYCAEMIA [None]
  - ASTHENIA [None]
